FAERS Safety Report 8068815-9 (Version None)
Quarter: 2012Q1

REPORT INFORMATION
  Report Type: 
  Country: None (occurrence: None)
  Receive Date: 20120125
  Receipt Date: 20120117
  Transmission Date: 20120608
  Serious: Yes (Death, Hospitalization)
  Sender: FDA-Public Use
  Company Number: US-BRISTOL-MYERS SQUIBB COMPANY-16261067

PATIENT
  Age: 58 Year
  Sex: Male

DRUGS (3)
  1. NULOJIX [Suspect]
     Indication: RENAL TRANSPLANT
     Route: 042
     Dates: start: 20110801, end: 20111101
  2. PLAVIX [Suspect]
  3. ASPIRIN [Suspect]

REACTIONS (2)
  - HAEMOPTYSIS [None]
  - MYOCARDIAL INFARCTION [None]
